FAERS Safety Report 24921580 (Version 1)
Quarter: 2025Q1

REPORT INFORMATION
  Report Type: Spontaneous
  Country: AU (occurrence: AU)
  Receive Date: 20250204
  Receipt Date: 20250204
  Transmission Date: 20250409
  Serious: Yes (Other)
  Sender: CELLTRION
  Company Number: AU-CELLTRION INC.-2025AU003109

PATIENT

DRUGS (4)
  1. RITUXIMAB [Suspect]
     Active Substance: RITUXIMAB
     Indication: Follicular lymphoma
     Dosage: 375MG/M2 IV FOR FOUR FURTHER CYCLES
     Route: 042
  2. RITUXIMAB [Suspect]
     Active Substance: RITUXIMAB
     Route: 042
  3. NIVOLUMAB [Suspect]
     Active Substance: NIVOLUMAB
     Indication: Follicular lymphoma
     Dosage: PRIMING 240 MG INTRAVENOUSLY (IV) EVERY TWO WEEKS FOR FOUR CYCLES
     Route: 042
  4. NIVOLUMAB [Suspect]
     Active Substance: NIVOLUMAB
     Dosage: 480 MG IV EVERY 4 WEEKS FOR 12 MONTHS TOTAL
     Route: 042

REACTIONS (2)
  - Cholecystitis [Unknown]
  - Product use issue [Unknown]
